FAERS Safety Report 4874465-5 (Version None)
Quarter: 2005Q4

REPORT INFORMATION
  Report Type: 
  Country: None (occurrence: None)
  Receive Date: 20051201
  Receipt Date: 20050818
  Transmission Date: 20060501
  Serious: No
  Sender: FDA-Public Use
  Company Number: 2005PV001090

PATIENT
  Sex: Male

DRUGS (2)
  1. BYETTA [Suspect]
     Indication: DIABETES MELLITUS
     Dosage: SEE IMAGE
     Route: 058
     Dates: start: 20050718, end: 20050817
  2. BYETTA [Suspect]
     Indication: DIABETES MELLITUS
     Dosage: SEE IMAGE
     Route: 058
     Dates: start: 20050818, end: 20050818

REACTIONS (5)
  - INJECTION SITE ERYTHEMA [None]
  - INJECTION SITE IRRITATION [None]
  - INJECTION SITE SWELLING [None]
  - PRURITUS [None]
  - URTICARIA [None]
